FAERS Safety Report 9341582 (Version 1)
Quarter: 2013Q2

REPORT INFORMATION
  Report Type: Report from Study
  Country: MX (occurrence: MX)
  Receive Date: 20130611
  Receipt Date: 20130611
  Transmission Date: 20140414
  Serious: Yes (Death, Other)
  Sender: FDA-Public Use
  Company Number: PHHY2013MX058847

PATIENT
  Age: 45 Year
  Sex: Female

DRUGS (1)
  1. ONBREZ [Suspect]
     Dosage: 300 UG, UNK
     Dates: start: 20130418

REACTIONS (4)
  - Pulmonary thrombosis [Fatal]
  - Viral infection [Fatal]
  - Thrombosis [Unknown]
  - Malaise [Unknown]
